FAERS Safety Report 22333820 (Version 1)
Quarter: 2023Q2

REPORT INFORMATION
  Report Type: Spontaneous
  Country: US (occurrence: US)
  Receive Date: 20230517
  Receipt Date: 20230517
  Transmission Date: 20230722
  Serious: Yes (Other)
  Sender: FDA-Public Use
  Company Number: US-AIMMUNE THERAPEUTICS, INC.-2022AIMT02788

PATIENT

DRUGS (3)
  1. PALFORZIA [Suspect]
     Active Substance: PEANUT
     Indication: Food allergy
     Dosage: IDE (0.5-6MG), ONCE
     Route: 048
  2. PALFORZIA [Suspect]
     Active Substance: PEANUT
     Dosage: 180 MG, 1X/DAY
     Route: 048
  3. PALFORZIA [Suspect]
     Active Substance: PEANUT
     Dosage: 180 MG, ONCE, LAST DOSE PRIOR TO EVENT
     Route: 048

REACTIONS (3)
  - Angioedema [Unknown]
  - Hypotension [Unknown]
  - Urticaria [Unknown]
